FAERS Safety Report 25463289 (Version 1)
Quarter: 2025Q2

REPORT INFORMATION
  Report Type: Spontaneous
  Country: US (occurrence: US)
  Receive Date: 20250620
  Receipt Date: 20250620
  Transmission Date: 20250716
  Serious: Yes (Hospitalization, Other)
  Sender: TEVA
  Company Number: US-TEVA-VS-3342517

PATIENT
  Age: 40 Year
  Sex: Male

DRUGS (12)
  1. CLONAZEPAM [Suspect]
     Active Substance: CLONAZEPAM
     Indication: Product used for unknown indication
     Route: 065
  2. METFORMIN [Suspect]
     Active Substance: METFORMIN HYDROCHLORIDE
     Indication: Diabetes mellitus
     Route: 065
  3. ARIPIPRAZOLE [Suspect]
     Active Substance: ARIPIPRAZOLE
     Indication: Autism spectrum disorder
     Route: 065
  4. INGREZZA [Suspect]
     Active Substance: VALBENAZINE DITOSYLATE
     Indication: Tardive dyskinesia
     Route: 048
     Dates: start: 20230815, end: 20240205
  5. INGREZZA [Suspect]
     Active Substance: VALBENAZINE DITOSYLATE
     Indication: Tardive dyskinesia
     Dosage: THE PATIENT TOOK INGREZZA 60 MILLIGRAMS ORAL DAILY TO AN UNKNOWN DATE, THEN ?DECREASED TO 40 MILL...
     Route: 048
     Dates: start: 20240309
  6. INGREZZA [Suspect]
     Active Substance: VALBENAZINE DITOSYLATE
     Indication: Tardive dyskinesia
     Route: 048
     Dates: start: 20240209
  7. INGREZZA [Suspect]
     Active Substance: VALBENAZINE DITOSYLATE
     Indication: Tardive dyskinesia
     Route: 048
     Dates: start: 20250411
  8. THORAZINE [Suspect]
     Active Substance: CHLORPROMAZINE
     Indication: Product used for unknown indication
     Route: 065
  9. LEXAPRO [Suspect]
     Active Substance: ESCITALOPRAM OXALATE
     Indication: Product used for unknown indication
     Route: 065
  10. VISTARIL [Suspect]
     Active Substance: HYDROXYZINE PAMOATE
     Indication: Product used for unknown indication
     Route: 065
  11. KEPPRA [Suspect]
     Active Substance: LEVETIRACETAM
     Indication: Product used for unknown indication
     Route: 065
  12. ATENOLOL [Suspect]
     Active Substance: ATENOLOL
     Indication: Product used for unknown indication
     Route: 065

REACTIONS (35)
  - Tardive dyskinesia [Not Recovered/Not Resolved]
  - Drooling [Not Recovered/Not Resolved]
  - Polyuria [Unknown]
  - Anxiety [Unknown]
  - Decreased appetite [Unknown]
  - Somnolence [Unknown]
  - Pain in jaw [Unknown]
  - Neck injury [Unknown]
  - Chest injury [Unknown]
  - Limb injury [Unknown]
  - Headache [Unknown]
  - Pain in extremity [Unknown]
  - Blood pressure decreased [Not Recovered/Not Resolved]
  - Sneezing [Unknown]
  - Blood glucose increased [Unknown]
  - Fatigue [Unknown]
  - Nausea [Unknown]
  - Feeling abnormal [Unknown]
  - Hallucination, auditory [Unknown]
  - Urinary incontinence [Unknown]
  - Polydipsia [Unknown]
  - Stomatitis [Unknown]
  - Tremor [Not Recovered/Not Resolved]
  - Hospitalisation [Unknown]
  - Hyperhidrosis [Unknown]
  - Blood cholesterol increased [Unknown]
  - Pollakiuria [Not Recovered/Not Resolved]
  - Haematemesis [Unknown]
  - Blood glucose decreased [Unknown]
  - Weight decreased [Unknown]
  - Dissociation [Unknown]
  - Road traffic accident [Unknown]
  - Feeling jittery [Unknown]
  - Speech disorder [Unknown]
  - Blood glucose fluctuation [Unknown]

NARRATIVE: CASE EVENT DATE: 20230101
